FAERS Safety Report 13536914 (Version 2)
Quarter: 2017Q2

REPORT INFORMATION
  Report Type: Report from Study
  Country: US (occurrence: US)
  Receive Date: 20170511
  Receipt Date: 20170607
  Transmission Date: 20170830
  Serious: No
  Sender: FDA-Public Use
  Company Number: PHEH2017US014127

PATIENT
  Age: 40 Year
  Sex: Female
  Weight: 80.73 kg

DRUGS (2)
  1. ZOFRAN [Concomitant]
     Active Substance: ONDANSETRON HYDROCHLORIDE
     Indication: NAUSEA
     Dosage: UNK
     Route: 065
  2. GILENYA [Suspect]
     Active Substance: FINGOLIMOD HYDROCHLORIDE
     Indication: MULTIPLE SCLEROSIS
     Dosage: 0.5 MG, QD
     Route: 048
     Dates: start: 20170509

REACTIONS (3)
  - Chest pain [Unknown]
  - Headache [Unknown]
  - Nausea [Unknown]

NARRATIVE: CASE EVENT DATE: 20170509
